FAERS Safety Report 14125454 (Version 2)
Quarter: 2017Q4

REPORT INFORMATION
  Report Type: Spontaneous
  Country: GB (occurrence: GB)
  Receive Date: 20171025
  Receipt Date: 20171127
  Transmission Date: 20180321
  Serious: Yes (Life-Threatening, Other)
  Sender: FDA-Public Use
  Company Number: GB-JNJFOC-20151005614

PATIENT

DRUGS (2)
  1. DOXORUBICIN HYDROCHLORIDE. [Suspect]
     Active Substance: DOXORUBICIN HYDROCHLORIDE
     Indication: SARCOMA METASTATIC
     Route: 042
  2. DOXORUBICIN HYDROCHLORIDE. [Suspect]
     Active Substance: DOXORUBICIN HYDROCHLORIDE
     Indication: SARCOMA METASTATIC
     Dosage: 75 MG/M2 IV DAY 8 EVERY 3 WEEKS (WKS).
     Route: 065

REACTIONS (84)
  - Febrile neutropenia [Unknown]
  - Rectal haemorrhage [Unknown]
  - Cardiac failure [Unknown]
  - Anaemia [Unknown]
  - Constipation [Unknown]
  - Pyrexia [Unknown]
  - Non-cardiac chest pain [Unknown]
  - Tremor [Unknown]
  - Premature menopause [Unknown]
  - Aspartate aminotransferase increased [Unknown]
  - Hypokalaemia [Unknown]
  - Lung infection [Unknown]
  - Acute kidney injury [Unknown]
  - Pulmonary haemorrhage [Unknown]
  - Lower gastrointestinal haemorrhage [Unknown]
  - Dyspepsia [Unknown]
  - Cough [Unknown]
  - Hyponatraemia [Unknown]
  - Syncope [Unknown]
  - Vascular access complication [Unknown]
  - Infection [Unknown]
  - Left ventricular dysfunction [Unknown]
  - Alopecia [Unknown]
  - Blood urea increased [Unknown]
  - Hypersensitivity [Unknown]
  - Sepsis [Unknown]
  - White blood cell count decreased [Unknown]
  - Stomatitis [Unknown]
  - Vomiting [Unknown]
  - Alanine aminotransferase increased [Unknown]
  - Oedema peripheral [Unknown]
  - Back pain [Unknown]
  - Lichen sclerosus [Unknown]
  - Hypercalcaemia [Unknown]
  - Oral candidiasis [Unknown]
  - Pleural effusion [Unknown]
  - Muscular weakness [Unknown]
  - Off label use [Unknown]
  - Tumour pain [Unknown]
  - Myocardial infarction [Unknown]
  - Platelet count decreased [Unknown]
  - Diarrhoea [Unknown]
  - Hypertension [Unknown]
  - Peripheral sensory neuropathy [Unknown]
  - Dry mouth [Unknown]
  - Urinary tract infection [Unknown]
  - Urticaria [Unknown]
  - Hiccups [Unknown]
  - Neutropenia [Unknown]
  - Hyperkalaemia [Unknown]
  - Anal abscess [Unknown]
  - Intestinal perforation [Unknown]
  - Decreased appetite [Unknown]
  - Hypoalbuminaemia [Unknown]
  - Dizziness [Unknown]
  - Breast pain [Unknown]
  - Skin infection [Unknown]
  - Nail infection [Unknown]
  - Embolism [Unknown]
  - Renal vein thrombosis [Unknown]
  - Fatigue [Unknown]
  - Pain [Unknown]
  - Blood alkaline phosphatase increased [Unknown]
  - Bone pain [Unknown]
  - Gamma-glutamyltransferase increased [Unknown]
  - Myalgia [Unknown]
  - Pneumonitis [Unknown]
  - Hyperglycaemia [Unknown]
  - Large intestinal ulcer [Unknown]
  - Nausea [Unknown]
  - Abdominal pain [Unknown]
  - Dyspnoea [Unknown]
  - Dysgeusia [Unknown]
  - Insomnia [Unknown]
  - Product use in unapproved indication [Unknown]
  - Lower respiratory tract infection [Unknown]
  - Angina pectoris [Unknown]
  - Wound infection [Unknown]
  - Pneumothorax [Unknown]
  - Herpes zoster [Unknown]
  - Upper respiratory tract infection [Unknown]
  - Blood creatinine decreased [Unknown]
  - Epistaxis [Unknown]
  - Rash [Unknown]
